FAERS Safety Report 7985593-X (Version None)
Quarter: 2011Q4

REPORT INFORMATION
  Report Type: 
  Country: None (occurrence: None)
  Receive Date: 20111216
  Receipt Date: 20111205
  Transmission Date: 20120403
  Serious: Yes (Death)
  Sender: FDA-Public Use
  Company Number: IN-CTI_01423_2011

PATIENT
  Age: 24 Hour

DRUGS (1)
  1. CUROSURF [Suspect]
     Indication: PRODUCT USED FOR UNKNOWN INDICATION
     Dosage: DAILY DOSE UNKNOWN

REACTIONS (2)
  - EXPIRED DRUG ADMINISTERED [None]
  - INCORRECT ROUTE OF DRUG ADMINISTRATION [None]
